FAERS Safety Report 19081796 (Version 2)
Quarter: 2021Q2

REPORT INFORMATION
  Report Type: Spontaneous
  Country: PL (occurrence: PL)
  Receive Date: 20210401
  Receipt Date: 20210414
  Transmission Date: 20210717
  Serious: Yes (Other)
  Sender: FDA-Public Use
  Company Number: PL-TEVA-2021-PL-1898137

PATIENT
  Age: 40 Year
  Sex: Female

DRUGS (5)
  1. IMATINIB. [Suspect]
     Active Substance: IMATINIB MESYLATE
     Dosage: 300 MILLIGRAM DAILY;
     Route: 065
  2. NILOTINIB [Suspect]
     Active Substance: NILOTINIB
     Route: 065
     Dates: start: 2016, end: 201608
  3. IMATINIB. [Suspect]
     Active Substance: IMATINIB MESYLATE
     Indication: CHRONIC MYELOID LEUKAEMIA
     Dosage: 400 MILLIGRAM DAILY;
     Route: 065
     Dates: start: 20150902
  4. NILOTINIB [Suspect]
     Active Substance: NILOTINIB
     Indication: CHRONIC MYELOID LEUKAEMIA
     Dosage: 800 MILLIGRAM DAILY;
     Route: 065
     Dates: start: 201602
  5. NILOTINIB [Suspect]
     Active Substance: NILOTINIB
     Dosage: 400 MG/DAY (2X200MG/DAY)
     Route: 065
     Dates: start: 201608, end: 201908

REACTIONS (1)
  - Immune thrombocytopenia [Recovered/Resolved]

NARRATIVE: CASE EVENT DATE: 201509
